FAERS Safety Report 7145106-1 (Version None)
Quarter: 2010Q4

REPORT INFORMATION
  Report Type: 
  Country: None (occurrence: None)
  Receive Date: 20101208
  Receipt Date: 20101202
  Transmission Date: 20110411
  Serious: Yes (Hospitalization)
  Sender: FDA-Public Use
  Company Number: US-JNJFOC-20101202192

PATIENT
  Sex: Female

DRUGS (1)
  1. FLEXERIL [Suspect]
     Indication: WHIPLASH INJURY
     Route: 048

REACTIONS (3)
  - APHASIA [None]
  - DIZZINESS [None]
  - HYPOAESTHESIA ORAL [None]
